FAERS Safety Report 10749808 (Version 1)
Quarter: 2015Q1

REPORT INFORMATION
  Report Type: Spontaneous
  Country: US (occurrence: US)
  Receive Date: 20150129
  Receipt Date: 20150129
  Transmission Date: 20150721
  Serious: Yes (Other)
  Sender: FDA-Public Use
  Company Number: US-GLAXOSMITHKLINE-US2015GSK011494

PATIENT
  Age: 35 Year
  Sex: Female

DRUGS (5)
  1. CLONAZEPAM. [Suspect]
     Active Substance: CLONAZEPAM
  2. BUPROPION [Suspect]
     Active Substance: BUPROPION
     Dosage: 300 MG, UNK
  3. QUETIAPINE [Suspect]
     Active Substance: QUETIAPINE
     Dosage: 400 MG, UNK
  4. TRAZODONE [Suspect]
     Active Substance: TRAZODONE HYDROCHLORIDE
     Dosage: 100 MG, UNK
  5. VALPROIC ACID. [Suspect]
     Active Substance: VALPROIC ACID
     Dosage: 1500 MG, UNK

REACTIONS (8)
  - Somnolence [Unknown]
  - Overdose [Unknown]
  - Vomiting [Unknown]
  - Hepatic function abnormal [Unknown]
  - Hepatotoxicity [Unknown]
  - Abdominal pain [Unknown]
  - Suicide attempt [Unknown]
  - Nausea [Unknown]
